FAERS Safety Report 13977154 (Version 1)
Quarter: 2017Q3

REPORT INFORMATION
  Report Type: Spontaneous
  Country: US (occurrence: US)
  Receive Date: 20170915
  Receipt Date: 20170915
  Transmission Date: 20171128
  Serious: Yes (Other)
  Sender: FDA-Public Use
  Company Number: US-ROCHE-710948

PATIENT
  Sex: Female

DRUGS (2)
  1. HERCEPTIN [Suspect]
     Active Substance: TRASTUZUMAB
     Indication: BREAST CANCER
     Dosage: DOSE AND FREQUENCY: NOT REPORTED, 9 TIMES, FORM: INFUSION
     Route: 042
  2. TAXOL [Suspect]
     Active Substance: PACLITAXEL
     Indication: BREAST CANCER
     Dosage: DOSE AND FREQUENCY: NOT REPORTED
     Route: 065

REACTIONS (1)
  - Hypersensitivity [Unknown]

NARRATIVE: CASE EVENT DATE: 20100617
